FAERS Safety Report 19845684 (Version 2)
Quarter: 2021Q4

REPORT INFORMATION
  Report Type: Report from Study
  Country: IT (occurrence: IT)
  Receive Date: 20210916
  Receipt Date: 20211027
  Transmission Date: 20220303
  Serious: Yes (Life-Threatening)
  Sender: FDA-Public Use
  Company Number: None

PATIENT
  Age: 54 Year
  Sex: Female

DRUGS (8)
  1. TAVOR (LORAZEPAM) [Suspect]
     Active Substance: LORAZEPAM
     Dosage: 1 DF, SINGLE
     Route: 048
     Dates: start: 20210829, end: 20210829
  2. LYRICA [Suspect]
     Active Substance: PREGABALIN
     Dosage: 4 DF, SINGLE
     Route: 048
     Dates: start: 20210829, end: 20210829
  3. HALCION [Suspect]
     Active Substance: TRIAZOLAM
     Dosage: 10 DF, SINGLE
     Route: 048
     Dates: start: 20210829, end: 20210829
  4. EN [Suspect]
     Active Substance: DELORAZEPAM
     Dosage: 1 DF, SINGLE
     Route: 048
     Dates: start: 20210829, end: 20210829
  5. EN [Suspect]
     Active Substance: DELORAZEPAM
     Dosage: 1 DF, SINGLE
     Route: 048
     Dates: start: 20210829, end: 20210829
  6. PAROXETINE HYDROCHLORIDE [Suspect]
     Active Substance: PAROXETINE HYDROCHLORIDE
     Dosage: 1 DF, SINGLE
     Route: 048
     Dates: start: 20210829, end: 20210829
  7. SEROQUEL [Suspect]
     Active Substance: QUETIAPINE FUMARATE
     Dosage: 1 DF, SINGLE
     Route: 048
     Dates: start: 20210829, end: 20210829
  8. LAMICTAL [Suspect]
     Active Substance: LAMOTRIGINE
     Dosage: 1 DF, SINGLE
     Route: 048
     Dates: start: 20210829, end: 20210829

REACTIONS (3)
  - Intentional self-injury [Recovering/Resolving]
  - Sopor [Recovering/Resolving]
  - Drug abuse [Recovering/Resolving]

NARRATIVE: CASE EVENT DATE: 20210829
